FAERS Safety Report 13270444 (Version 3)
Quarter: 2017Q2

REPORT INFORMATION
  Report Type: Spontaneous
  Country: JP (occurrence: JP)
  Receive Date: 20170224
  Receipt Date: 20170404
  Transmission Date: 20170830
  Serious: Yes (Death)
  Sender: FDA-Public Use
  Company Number: JP-MALLINCKRODT-T201700632

PATIENT
  Age: 89 Year
  Sex: Male
  Weight: 50 kg

DRUGS (4)
  1. OFIRMEV [Suspect]
     Active Substance: ACETAMINOPHEN
     Indication: POSTOPERATIVE ANALGESIA
     Dosage: 3000 MG, (1000 MG 3/1 DAY)
     Route: 042
     Dates: start: 20161118, end: 20161118
  2. OFIRMEV [Suspect]
     Active Substance: ACETAMINOPHEN
     Dosage: 2000 MG, (1000 MG 2/1 DAY)
     Route: 042
     Dates: start: 20161119, end: 20161119
  3. ROPION [Suspect]
     Active Substance: FLURBIPROFEN AXETIL
     Indication: POSTOPERATIVE ANALGESIA
     Dosage: 150 MG
     Route: 042
     Dates: start: 20161117, end: 20161119
  4. LOXONIN [Suspect]
     Active Substance: LOXOPROFEN SODIUM
     Indication: POSTOPERATIVE ANALGESIA
     Dosage: 180 MG
     Route: 048
     Dates: start: 20161119, end: 20161120

REACTIONS (9)
  - Cardiac arrest [Fatal]
  - Sepsis [Fatal]
  - Abdominal distension [Fatal]
  - Vomiting [Fatal]
  - Upper gastrointestinal perforation [Fatal]
  - Shock [Fatal]
  - Multiple organ dysfunction syndrome [Fatal]
  - Musculoskeletal pain [Fatal]
  - Cold sweat [Fatal]

NARRATIVE: CASE EVENT DATE: 20161119
